FAERS Safety Report 8490068-8 (Version None)
Quarter: 2012Q3

REPORT INFORMATION
  Report Type: 
  Country: None (occurrence: None)
  Receive Date: 20120705
  Receipt Date: 20120702
  Transmission Date: 20120928
  Serious: No
  Sender: FDA-Public Use
  Company Number: US-PFIZER INC-2012158752

PATIENT
  Sex: Female

DRUGS (2)
  1. ALAVERT [Suspect]
     Dosage: UNK
  2. CLARITIN [Suspect]
     Dosage: UNK

REACTIONS (3)
  - FEELING ABNORMAL [None]
  - DRUG HYPERSENSITIVITY [None]
  - FATIGUE [None]
